FAERS Safety Report 15858920 (Version 1)
Quarter: 2019Q1

REPORT INFORMATION
  Report Type: Spontaneous
  Country: US (occurrence: US)
  Receive Date: 20190123
  Receipt Date: 20190123
  Transmission Date: 20190417
  Serious: No
  Sender: FDA-Public Use
  Company Number: US-GLAXOSMITHKLINE-US2019004212

PATIENT
  Sex: Female

DRUGS (1)
  1. BREO ELLIPTA [Suspect]
     Active Substance: FLUTICASONE FUROATE\VILANTEROL TRIFENATATE
     Indication: COCCIDIOIDOMYCOSIS
     Dosage: 1 PUFF(S), QD
     Route: 055

REACTIONS (3)
  - Product use in unapproved indication [Unknown]
  - Wrong technique in device usage process [Unknown]
  - Product dose omission [Unknown]
